FAERS Safety Report 18690302 (Version 4)
Quarter: 2021Q1

REPORT INFORMATION
  Report Type: Spontaneous
  Country: CZ (occurrence: CZ)
  Receive Date: 20210101
  Receipt Date: 20210211
  Transmission Date: 20210419
  Serious: Yes (Other)
  Sender: FDA-Public Use
  Company Number: CZ-LUPIN PHARMACEUTICALS INC.-2020-11240

PATIENT
  Age: 41 Year
  Sex: Female
  Weight: 106 kg

DRUGS (8)
  1. LURASIDONE [Suspect]
     Active Substance: LURASIDONE
     Dosage: 111 MILLIGRAM, QD (THE STARTING DOSE OF 37 MG DAILY WAS INCREASED TO 111 MG OVER SIX DAYS)
     Route: 065
  2. DESLORATADINE. [Concomitant]
     Active Substance: DESLORATADINE
     Indication: SEASONAL ALLERGY
     Dosage: 5 MILLIGRAM, UNK
     Route: 065
  3. QUETIAPINE FUMARATE. [Suspect]
     Active Substance: QUETIAPINE FUMARATE
     Indication: PRODUCT USED FOR UNKNOWN INDICATION
     Dosage: 300 MILLIGRAM, QD
     Route: 065
  4. LURASIDONE [Suspect]
     Active Substance: LURASIDONE
     Indication: SCHIZOPHRENIA
     Dosage: 37 MILLIGRAM, QD
     Route: 065
  5. HALOPERIDOL. [Suspect]
     Active Substance: HALOPERIDOL
     Dosage: 6 MILLIGRAM, QD
     Route: 030
  6. LURASIDONE [Suspect]
     Active Substance: LURASIDONE
     Dosage: 92.5 MILLIGRAM, QD
     Route: 065
  7. LEVOTHYROXINE. [Concomitant]
     Active Substance: LEVOTHYROXINE
     Indication: HYPOTHYROIDISM
     Dosage: UNK
     Route: 065
  8. HALOPERIDOL. [Suspect]
     Active Substance: HALOPERIDOL
     Indication: PRODUCT USED FOR UNKNOWN INDICATION
     Dosage: 10 MILLIGRAM, QD
     Route: 030

REACTIONS (6)
  - Akathisia [Unknown]
  - Product dose omission issue [Unknown]
  - Weight increased [Recovering/Resolving]
  - Therapeutic response decreased [Unknown]
  - Drug level above therapeutic [Unknown]
  - Drug ineffective [Unknown]
